FAERS Safety Report 8276529 (Version 4)
Quarter: 2020Q3

REPORT INFORMATION
  Report Type: Report from Study
  Country: US (occurrence: US)
  Receive Date: 20111206
  Receipt Date: 20120305
  Transmission Date: 20201105
  Serious: Yes (Hospitalization)
  Sender: FDA-Public Use
  Company Number: US-ROCHE-1013887

PATIENT
  Age: 57 Year
  Sex: Male
  Weight: 83.08 kg

DRUGS (12)
  1. PEGINTERFERON ALFA?2A. [Suspect]
     Active Substance: PEGINTERFERON ALFA-2A
     Indication: HEPATITIS C
     Dosage: DATE OF LAST DOSE PRIOR TO SAE: 09 NOV 2011
     Route: 058
     Dates: start: 20101214, end: 20111116
  2. NICOTINE. [Concomitant]
     Active Substance: NICOTINE
     Dates: start: 20111114, end: 20111119
  3. ZOLPIDEM [Concomitant]
     Active Substance: ZOLPIDEM TARTRATE
     Dates: start: 20090111
  4. IBUPROFEN. [Concomitant]
     Active Substance: IBUPROFEN
     Dates: start: 20101028
  5. LISINOPRIL. [Concomitant]
     Active Substance: LISINOPRIL
     Dates: start: 20111114, end: 20111119
  6. LEXAPRO [Concomitant]
     Active Substance: ESCITALOPRAM OXALATE
     Dates: start: 20110711
  7. EPOETIN ALFA [Concomitant]
     Active Substance: ERYTHROPOIETIN
     Dates: start: 20110330
  8. DANOPREVIR. [Suspect]
     Active Substance: DANOPREVIR
     Indication: PRODUCT USED FOR UNKNOWN INDICATION
     Route: 065
  9. PROCRIT [Concomitant]
     Active Substance: ERYTHROPOIETIN
     Dosage: 40 K UNITS DAILY
     Dates: start: 20110330, end: 20111116
  10. ASPIRIN. [Concomitant]
     Active Substance: ASPIRIN
     Dates: start: 20111114, end: 20111119
  11. COPEGUS [Suspect]
     Active Substance: RIBAVIRIN
     Indication: HEPATITIS C
     Dates: start: 20101214, end: 20111114
  12. RITONAVIR. [Suspect]
     Active Substance: RITONAVIR
     Indication: PRODUCT USED FOR UNKNOWN INDICATION
     Route: 065

REACTIONS (2)
  - Haematemesis [Recovered/Resolved]
  - Pancreatitis [Recovered/Resolved]

NARRATIVE: CASE EVENT DATE: 20111114
